FAERS Safety Report 4512257-7 (Version None)
Quarter: 2004Q4

REPORT INFORMATION
  Report Type: 
  Country: None (occurrence: None)
  Receive Date: 20041123
  Receipt Date: 20041109
  Transmission Date: 20050328
  Serious: Yes (Life-Threatening, Hospitalization)
  Sender: FDA-Public Use
  Company Number: K200401724

PATIENT
  Age: 80 Year
  Sex: Female

DRUGS (7)
  1. ALTACE [Suspect]
     Indication: HYPERTENSION
     Dosage: 10 MG, QD, ORAL
     Route: 048
     Dates: end: 20040811
  2. CLEXANE (ENOXAPARIN SODIUM) SOLUTION, 400MG [Suspect]
     Indication: PROPHYLAXIS
     Dosage: 400 MG, QD, SUBCUTANEOUS
     Route: 058
     Dates: start: 20040809, end: 20040814
  3. IBUPROFEN (IBUPROFEN) 1,200 MG [Suspect]
     Indication: PAIN
     Dosage: 1,200 MG, QD, ORAL
     Route: 048
     Dates: start: 20000809, end: 20040814
  4. FUROSEMIDE [Suspect]
     Indication: CARDIAC FAILURE
     Dosage: 40 MG, QD, ORAL
     Route: 048
  5. SERETIDE                (SALMETEROL XINAFOATE, FLUTICASONE PROPIONATE) [Concomitant]
  6. ACETAMINOPHEN [Concomitant]
  7. NYSTATIN [Concomitant]

REACTIONS (13)
  - BLOOD POTASSIUM INCREASED [None]
  - CELLULITIS [None]
  - DEHYDRATION [None]
  - DUODENAL ULCER HAEMORRHAGE [None]
  - DUODENITIS [None]
  - GASTRIC ULCER [None]
  - GASTRITIS [None]
  - HIATUS HERNIA [None]
  - NEPHROPATHY TOXIC [None]
  - OEDEMA [None]
  - OESOPHAGITIS [None]
  - RENAL FAILURE ACUTE [None]
  - SEPSIS [None]
